FAERS Safety Report 4546543-1 (Version None)
Quarter: 2005Q1

REPORT INFORMATION
  Report Type: 
  Country: None (occurrence: None)
  Receive Date: 20050103
  Receipt Date: 20041221
  Transmission Date: 20050727
  Serious: Yes (Death, Life-Threatening, Other)
  Sender: FDA-Public Use
  Company Number: 2004117617

PATIENT
  Age: 64 Year
  Sex: Male

DRUGS (6)
  1. CELEBREX [Suspect]
     Indication: BACK PAIN
     Dosage: (PRN)
     Dates: start: 20020101
  2. NAFTIDROFURYL OXALATE (NAFTIDROFURYL OXALATE) [Concomitant]
  3. ALLOPURINOL [Concomitant]
  4. DIACEREIN (DIACEREIN) [Concomitant]
  5. PRAVASTATIN SODIUM [Concomitant]
  6. ETIFOXINE HYDROCHLORIDE (ETIFOXINE HYDROCHLORIDE) [Concomitant]

REACTIONS (6)
  - CYANOSIS [None]
  - MALAISE [None]
  - MYOCARDIAL INFARCTION [None]
  - OEDEMA PERIPHERAL [None]
  - SUDDEN DEATH [None]
  - THROAT TIGHTNESS [None]
